FAERS Safety Report 4356056-8 (Version None)
Quarter: 2004Q2

REPORT INFORMATION
  Report Type: 
  Country: None (occurrence: None)
  Receive Date: 20040511
  Receipt Date: 20030130
  Transmission Date: 20050107
  Serious: Yes (Hospitalization, Disabling)
  Sender: FDA-Public Use
  Company Number: US-MERCK-0302USA00127

PATIENT
  Age: 48 Year
  Sex: Female
  Weight: 73 kg

DRUGS (17)
  1. ASCORBIC ACID [Concomitant]
     Route: 065
  2. WELLBUTRIN [Concomitant]
     Route: 065
  3. CALCIUM (UNSPECIFIED) [Concomitant]
     Route: 065
  4. LANOXIN [Concomitant]
     Route: 065
  5. PREMARIN [Concomitant]
     Route: 065
     Dates: start: 19850101, end: 20020901
  6. LASIX [Concomitant]
     Route: 065
     Dates: start: 19981211
  7. GINKGO BILOBA EXTRACT [Concomitant]
     Route: 065
     Dates: start: 19990101, end: 20000101
  8. LEVOCARNITINE [Concomitant]
     Route: 065
  9. PRINIVIL [Concomitant]
     Route: 048
     Dates: start: 19981101, end: 20001001
  10. MAGNESIUM (UNSPECIFIED) [Concomitant]
     Route: 065
  11. NICOTINE [Concomitant]
     Route: 065
  12. PAMELOR [Concomitant]
     Route: 065
  13. VIOXX [Suspect]
     Indication: MERALGIA PARAESTHETICA
     Route: 048
     Dates: start: 20000110, end: 20000329
  14. COENZYME Q10 [Concomitant]
     Route: 065
  15. VITAMIN B (UNSPECIFIED) [Concomitant]
     Route: 065
  16. VITAMIN E [Concomitant]
     Route: 065
  17. COUMADIN [Concomitant]
     Indication: CEREBROVASCULAR ACCIDENT
     Route: 065
     Dates: start: 19981223

REACTIONS (39)
  - ANXIETY [None]
  - AORTIC CALCIFICATION [None]
  - BUNDLE BRANCH BLOCK LEFT [None]
  - CARDIAC FAILURE CONGESTIVE [None]
  - CARDIOMYOPATHY [None]
  - CAROTID ARTERY DISEASE [None]
  - CHEST PAIN [None]
  - COLON ADENOMA [None]
  - CONGESTIVE CARDIOMYOPATHY [None]
  - COUGH [None]
  - DEPRESSION [None]
  - DIFFICULTY IN WALKING [None]
  - DIZZINESS [None]
  - DRUG HYPERSENSITIVITY [None]
  - DYSPEPSIA [None]
  - EJECTION FRACTION DECREASED [None]
  - FATIGUE [None]
  - FIBROADENOMA OF BREAST [None]
  - FLUID RETENTION [None]
  - GASTROINTESTINAL TRACT ADENOMA [None]
  - HAEMORRHOIDS [None]
  - HYPERLIPIDAEMIA [None]
  - HYPERTENSION [None]
  - INJURY [None]
  - INSOMNIA [None]
  - MITRAL VALVE INCOMPETENCE [None]
  - MOOD SWINGS [None]
  - MULTIPLE ALLERGIES [None]
  - NIGHTMARE [None]
  - PAIN IN EXTREMITY [None]
  - PROCTALGIA [None]
  - SINUS TACHYCARDIA [None]
  - SNORING [None]
  - SOMNOLENCE [None]
  - SPONDYLOSIS [None]
  - TRICUSPID VALVE INCOMPETENCE [None]
  - VENTRICULAR EXTRASYSTOLES [None]
  - VIRAL INFECTION [None]
  - WEIGHT INCREASED [None]
